FAERS Safety Report 9541686 (Version 1)
Quarter: 2013Q2

REPORT INFORMATION
  Report Type: Spontaneous
  Country: US (occurrence: None)
  Receive Date: 20130524
  Receipt Date: 20130524
  Transmission Date: 20140414
  Serious: No
  Sender: FDA-Public Use
  Company Number: PHEH2012US023785

PATIENT
  Age: 59 Year
  Sex: Male

DRUGS (3)
  1. GILENYA [Suspect]
     Route: 048
     Dates: start: 201110
  2. BACLOFEN [Suspect]
  3. AMPYRA [Suspect]

REACTIONS (2)
  - Malaise [None]
  - Gastric disorder [None]
